FAERS Safety Report 8376034-1 (Version None)
Quarter: 2012Q2

REPORT INFORMATION
  Report Type: 
  Country: None (occurrence: None)
  Receive Date: 20120517
  Receipt Date: 20120502
  Transmission Date: 20120825
  Serious: Yes (Other)
  Sender: FDA-Public Use
  Company Number: 2012MA005987

PATIENT
  Age: 79 Year
  Sex: Female

DRUGS (4)
  1. GEMCITABINE HYDROCHLORIDE [Suspect]
     Indication: GASTROINTESTINAL CARCINOMA
     Dosage: 1800 MG, IV
     Route: 042
     Dates: start: 20111230, end: 20120224
  2. DEXAMETHASONE [Concomitant]
  3. ONDANSETRON [Concomitant]
  4. LORAZEPAM [Concomitant]

REACTIONS (2)
  - SOMNOLENCE [None]
  - BALANCE DISORDER [None]
